FAERS Safety Report 18072852 (Version 1)
Quarter: 2020Q3

REPORT INFORMATION
  Report Type: Spontaneous
  Country: US (occurrence: US)
  Receive Date: 20200727
  Receipt Date: 20200727
  Transmission Date: 20201103
  Serious: Yes (Hospitalization)
  Sender: FDA-Public Use
  Company Number: None

PATIENT
  Age: 56 Year
  Sex: Male
  Weight: 85.5 kg

DRUGS (3)
  1. CONVALESCENT PLASMA [Concomitant]
     Active Substance: HUMAN PLASMA
     Dates: start: 20200721, end: 20200723
  2. REMDESIVIR. [Suspect]
     Active Substance: REMDESIVIR
     Indication: COVID-19
     Route: 042
     Dates: start: 20200722, end: 20200726
  3. DEXAMETHASONE 6 MG IV [Concomitant]
     Dates: start: 20200721

REACTIONS (2)
  - Therapy interrupted [None]
  - Creatinine renal clearance increased [None]

NARRATIVE: CASE EVENT DATE: 20200726
